FAERS Safety Report 12870834 (Version 1)
Quarter: 2016Q4

REPORT INFORMATION
  Report Type: Spontaneous
  Country: BR (occurrence: BR)
  Receive Date: 20161021
  Receipt Date: 20161021
  Transmission Date: 20170207
  Serious: Yes (Other)
  Sender: FDA-Public Use
  Company Number: BR-ASTRAZENECA-2016SF09963

PATIENT
  Sex: Male
  Weight: 90 kg

DRUGS (3)
  1. AKINETON [Suspect]
     Active Substance: BIPERIDEN HYDROCHLORIDE
     Indication: SCHIZOPHRENIA
     Route: 048
  2. QUETIAPINE HEMIFUMARATE [Suspect]
     Active Substance: QUETIAPINE FUMARATE
     Indication: SCHIZOPHRENIA
     Dosage: 100 MG IN THE MORNING AND 200 MG AT NIGHT
     Route: 048
  3. RESTIRIDON [Suspect]
     Active Substance: UNSPECIFIED INGREDIENT
     Indication: SCHIZOPHRENIA
     Route: 048

REACTIONS (9)
  - Aggression [Unknown]
  - Eye disorder [Unknown]
  - Movement disorder [Unknown]
  - Feeding disorder [Unknown]
  - Hallucination, auditory [Unknown]
  - Insomnia [Unknown]
  - Visual acuity reduced [Unknown]
  - Dysstasia [Unknown]
  - Crying [Unknown]
